FAERS Safety Report 5018552-X (Version None)
Quarter: 2006Q2

REPORT INFORMATION
  Report Type: 
  Country: None (occurrence: None)
  Receive Date: 20060414
  Receipt Date: 20051220
  Transmission Date: 20061013
  Serious: No
  Sender: FDA-Public Use
  Company Number: 2005SP004470

PATIENT
  Age: 51 Year
  Sex: Female
  Weight: 77.1115 kg

DRUGS (5)
  1. LUNESTA [Suspect]
     Dosage: 3 MG;HS;ORAL
     Route: 048
     Dates: start: 20051101
  2. METHOTREXATE [Concomitant]
  3. REMICADE [Concomitant]
  4. LYSINE [Concomitant]
  5. MULTIVITAMIN [Concomitant]

REACTIONS (1)
  - DYSGEUSIA [None]
